FAERS Safety Report 25204589 (Version 1)
Quarter: 2025Q2

REPORT INFORMATION
  Report Type: Report from Study
  Country: US (occurrence: US)
  Receive Date: 20250416
  Receipt Date: 20250416
  Transmission Date: 20250717
  Serious: Yes (Other)
  Sender: ACADIA PHARMACEUTICALS
  Company Number: US-ACADIA PHARMACEUTICALS INC.-ACA-2025-PIM-004260

PATIENT
  Age: 66 Year
  Sex: Female

DRUGS (11)
  1. NUPLAZID [Suspect]
     Active Substance: PIMAVANSERIN TARTRATE
     Indication: Parkinson^s disease
     Dosage: 34 MILLIGRAM, QD
     Route: 048
     Dates: start: 20230912
  2. NUPLAZID [Suspect]
     Active Substance: PIMAVANSERIN TARTRATE
     Indication: Hallucination
  3. RASAGILINE [Concomitant]
     Active Substance: RASAGILINE
  4. GABAPENTIN [Concomitant]
     Active Substance: GABAPENTIN
  5. SINEMET CR [Concomitant]
     Active Substance: CARBIDOPA\LEVODOPA
  6. MELOXICAM [Concomitant]
     Active Substance: MELOXICAM
  7. CLONAZEPAM [Concomitant]
     Active Substance: CLONAZEPAM
  8. AMLODIPINE [Concomitant]
     Active Substance: AMLODIPINE BESYLATE
  9. VITAMIN D3 [Concomitant]
     Active Substance: CHOLECALCIFEROL
  10. AMANTADINE [Concomitant]
     Active Substance: AMANTADINE
  11. GOCOVRI [Concomitant]
     Active Substance: AMANTADINE

REACTIONS (3)
  - Hallucination, visual [Unknown]
  - Urinary tract infection [Unknown]
  - Therapeutic product effect incomplete [Unknown]

NARRATIVE: CASE EVENT DATE: 20250331
